FAERS Safety Report 25667999 (Version 1)
Quarter: 2025Q3

REPORT INFORMATION
  Report Type: Spontaneous
  Country: EU (occurrence: EU)
  Receive Date: 20250812
  Receipt Date: 20250812
  Transmission Date: 20251020
  Serious: Yes (Hospitalization)
  Sender: ROCHE
  Company Number: None

PATIENT
  Age: 32 Year
  Sex: Female
  Weight: 56 kg

DRUGS (2)
  1. RITUXIMAB [Suspect]
     Active Substance: RITUXIMAB
     Indication: Multiple sclerosis
     Route: 042
     Dates: start: 20250311
  2. CHOLECALCIFEROL [Concomitant]
     Active Substance: CHOLECALCIFEROL

REACTIONS (10)
  - Respiratory tract infection [Recovering/Resolving]
  - Gastrointestinal inflammation [Recovering/Resolving]
  - Intestinal haemorrhage [Recovering/Resolving]
  - Diarrhoea haemorrhagic [Recovering/Resolving]
  - General physical health deterioration [Recovering/Resolving]
  - Lactic acidosis [Recovering/Resolving]
  - Blood potassium increased [Recovering/Resolving]
  - C-reactive protein increased [Unknown]
  - Hypertension [Unknown]
  - Pain [Unknown]
